FAERS Safety Report 12138918 (Version 1)
Quarter: 2016Q1

REPORT INFORMATION
  Report Type: Spontaneous
  Country: None (occurrence: US)
  Receive Date: 20160302
  Receipt Date: 20160302
  Transmission Date: 20160526
  Serious: No
  Sender: FDA-Public Use
  Company Number: US-MATRIXX INITIATIVES, INC.-1048587

PATIENT
  Age: 58 Year
  Sex: Female
  Weight: 90 kg

DRUGS (9)
  1. UNSPECIFIED RAPIDMELT (ZINC ACETATE\ZINC GLUCONATE) [Suspect]
     Active Substance: ZINC ACETATE\ZINC GLUCONATE
  2. LEVOTHYROXINE. [Concomitant]
     Active Substance: LEVOTHYROXINE
  3. LIPITOR [Concomitant]
     Active Substance: ATORVASTATIN CALCIUM
  4. CALCIUM SUPPLEMENT [Concomitant]
     Active Substance: CALCIUM
  5. FISH OIL [Concomitant]
     Active Substance: FISH OIL
  6. FLAX SEED [Concomitant]
     Active Substance: FLAX SEED
  7. LISINOPRIL. [Concomitant]
     Active Substance: LISINOPRIL
  8. ZICAM COLD REMEDY [Suspect]
     Active Substance: ZINC ACETATE\ZINC GLUCONATE
     Indication: NASOPHARYNGITIS
     Route: 048
  9. TRIAMTERENE. [Concomitant]
     Active Substance: TRIAMTERENE

REACTIONS (1)
  - Ageusia [Recovered/Resolved]
